FAERS Safety Report 8917509 (Version 1)
Quarter: 2012Q4

REPORT INFORMATION
  Report Type: Report from Study
  Country: GB (occurrence: GB)
  Receive Date: 20121120
  Receipt Date: 20121120
  Transmission Date: 20130627
  Serious: Yes (Life-Threatening, Hospitalization)
  Sender: FDA-Public Use
  Company Number: GB-BRISTOL-MYERS SQUIBB COMPANY-17114778

PATIENT
  Age: 63 Year
  Sex: Female

DRUGS (3)
  1. MEGESTROL ACETATE [Suspect]
     Indication: BREAST CANCER
     Dates: start: 20090224, end: 20111116
  2. CELECOXIB [Concomitant]
     Indication: OSTEOARTHRITIS
     Route: 048
     Dates: start: 20101026, end: 20111116
  3. TAMOXIFEN [Concomitant]
     Indication: BREAST CANCER
     Dates: start: 20061221, end: 20111116

REACTIONS (4)
  - Pulmonary embolism [Recovering/Resolving]
  - Deep vein thrombosis [Recovering/Resolving]
  - Lung consolidation [Recovering/Resolving]
  - Cardiac disorder [Recovering/Resolving]
